FAERS Safety Report 15751901 (Version 1)
Quarter: 2018Q4

REPORT INFORMATION
  Report Type: Report from Study
  Country: JP (occurrence: JP)
  Receive Date: 20181221
  Receipt Date: 20181221
  Transmission Date: 20190205
  Serious: Yes (Hospitalization)
  Sender: FDA-Public Use
  Company Number: JP-PFIZER INC-2017040820

PATIENT
  Age: 81 Year
  Sex: Female
  Weight: 64 kg

DRUGS (11)
  1. XELJANZ [Suspect]
     Active Substance: TOFACITINIB CITRATE
     Indication: RHEUMATOID ARTHRITIS
     Dosage: 5 MG, 2X/DAY
     Route: 048
     Dates: start: 20160714, end: 20161101
  2. GLAKAY [Concomitant]
     Active Substance: MENATETRENONE
     Route: 048
  3. ALFAROL [Concomitant]
     Active Substance: ALFACALCIDOL
     Route: 048
  4. XELJANZ [Suspect]
     Active Substance: TOFACITINIB CITRATE
     Dosage: 5 MG, 2X/DAY
     Route: 048
     Dates: start: 20170117, end: 20180604
  5. CIMZIA [Concomitant]
     Active Substance: CERTOLIZUMAB PEGOL
     Indication: RHEUMATOID ARTHRITIS
     Dosage: UNK
     Dates: start: 20141126, end: 20160523
  6. CELECOX [Concomitant]
     Active Substance: CELECOXIB
     Route: 048
  7. ADALAT [Concomitant]
     Active Substance: NIFEDIPINE
     Route: 048
  8. MOHRUS [Concomitant]
     Active Substance: KETOPROFEN
     Route: 062
  9. DORNER [Concomitant]
     Active Substance: BERAPROST SODIUM
     Route: 048
  10. BLOPRESS [Concomitant]
     Active Substance: CANDESARTAN CILEXETIL
     Route: 048
  11. URSO [Concomitant]
     Active Substance: URSODIOL
     Route: 048

REACTIONS (3)
  - End stage renal disease [Unknown]
  - Femur fracture [Recovered/Resolved]
  - Cardiac failure acute [Unknown]

NARRATIVE: CASE EVENT DATE: 20161021
